FAERS Safety Report 16038080 (Version 5)
Quarter: 2019Q4

REPORT INFORMATION
  Report Type: Spontaneous
  Country: US (occurrence: US)
  Receive Date: 20190305
  Receipt Date: 20191002
  Transmission Date: 20200122
  Serious: Yes (Other)
  Sender: FDA-Public Use
  Company Number: US-ASTRAZENECA-2018SF33385

PATIENT
  Age: 714 Month
  Sex: Male
  Weight: 75.3 kg

DRUGS (23)
  1. NEXIUM 24HR [Suspect]
     Active Substance: ESOMEPRAZOLE MAGNESIUM
     Indication: GASTROOESOPHAGEAL REFLUX DISEASE
     Route: 048
     Dates: start: 2015, end: 2017
  2. TIMOLOL. [Concomitant]
     Active Substance: TIMOLOL
  3. DOXYCYCLIN [Concomitant]
     Active Substance: DOXYCYCLINE
  4. NEXIUM [Suspect]
     Active Substance: ESOMEPRAZOLE MAGNESIUM
     Indication: GASTROOESOPHAGEAL REFLUX DISEASE
     Route: 048
  5. NEXIUM [Suspect]
     Active Substance: ESOMEPRAZOLE MAGNESIUM
     Indication: GASTROOESOPHAGEAL REFLUX DISEASE
     Route: 048
     Dates: start: 20010220, end: 20171231
  6. ATORVASTATIN [Concomitant]
     Active Substance: ATORVASTATIN
     Indication: BLOOD CHOLESTEROL
  7. MELOXICAM. [Concomitant]
     Active Substance: MELOXICAM
     Indication: BLOOD CHOLESTEROL
  8. GABAPENTIN. [Concomitant]
     Active Substance: GABAPENTIN
     Indication: BLOOD CHOLESTEROL
  9. BUSPIRONE [Concomitant]
     Active Substance: BUSPIRONE HYDROCHLORIDE
     Indication: BLOOD CHOLESTEROL
  10. MIRTAZAPINE. [Concomitant]
     Active Substance: MIRTAZAPINE
  11. CEPHALEXIN. [Concomitant]
     Active Substance: CEPHALEXIN
  12. NEXIUM [Suspect]
     Active Substance: ESOMEPRAZOLE MAGNESIUM
     Indication: GASTROOESOPHAGEAL REFLUX DISEASE
     Route: 048
     Dates: start: 20140225
  13. ZIPRASIDONE. [Concomitant]
     Active Substance: ZIPRASIDONE
  14. AUGMENTIN [Concomitant]
     Active Substance: AMOXICILLIN\CLAVULANATE POTASSIUM
  15. METFORMIN [Concomitant]
     Active Substance: METFORMIN HYDROCHLORIDE
     Indication: DIABETES MELLITUS
  16. TRAMADOL. [Concomitant]
     Active Substance: TRAMADOL
     Indication: BLOOD CHOLESTEROL
  17. NEXIUM 24HR [Suspect]
     Active Substance: ESOMEPRAZOLE MAGNESIUM
     Indication: GASTROOESOPHAGEAL REFLUX DISEASE
     Route: 048
  18. LISINOPRIL. [Concomitant]
     Active Substance: LISINOPRIL
     Indication: HYPERTENSION
  19. IBUPROFEN. [Concomitant]
     Active Substance: IBUPROFEN
     Indication: PAIN
  20. KEPPRA [Concomitant]
     Active Substance: LEVETIRACETAM
     Indication: BLOOD CHOLESTEROL
  21. MOTRIN [Concomitant]
     Active Substance: IBUPROFEN
  22. NAPROXEN. [Concomitant]
     Active Substance: NAPROXEN
     Indication: ARTHRITIS
  23. TRAVATAN [Concomitant]
     Active Substance: TRAVOPROST

REACTIONS (6)
  - Chronic kidney disease [Not Recovered/Not Resolved]
  - Renal injury [Unknown]
  - Tubulointerstitial nephritis [Not Recovered/Not Resolved]
  - Acute kidney injury [Not Recovered/Not Resolved]
  - End stage renal disease [Unknown]
  - Renal failure [Unknown]

NARRATIVE: CASE EVENT DATE: 201601
